FAERS Safety Report 7940983 (Version 2)
Quarter: 2013Q1

REPORT INFORMATION
  Report Type: Spontaneous
  Country: FR (occurrence: FR)
  Receive Date: 20110511
  Receipt Date: 20130322
  Transmission Date: 20140127
  Serious: Yes (Hospitalization, Other)
  Sender: FDA-Public Use
  Company Number: FR-JNJFOC-20110500740

PATIENT
  Age: 0 Year
  Sex: Male
  Weight: 3.47 kg

DRUGS (4)
  1. HALDOL [Suspect]
     Indication: FOETAL EXPOSURE DURING PREGNANCY
     Route: 064
     Dates: end: 20090812
  2. LARGACTIL [Suspect]
     Indication: FOETAL EXPOSURE DURING PREGNANCY
     Route: 064
     Dates: end: 20090812
  3. TARDYFERON [Concomitant]
     Indication: FOETAL EXPOSURE DURING PREGNANCY
     Route: 064
  4. MAGNESIUM [Concomitant]
     Indication: FOETAL EXPOSURE DURING PREGNANCY
     Route: 064

REACTIONS (7)
  - Foetal heart rate deceleration [Recovered/Resolved]
  - Withdrawal syndrome [Recovered/Resolved]
  - Maternal drugs affecting foetus [Recovered/Resolved]
  - Neonatal disorder [Recovered/Resolved]
  - Foetal alcohol syndrome [Unknown]
  - Apgar score abnormal [Recovered/Resolved]
  - Foetal cardiac disorder [Recovered/Resolved]
